FAERS Safety Report 10035760 (Version 2)
Quarter: 2014Q2

REPORT INFORMATION
  Report Type: Report from Study
  Country: EC (occurrence: EC)
  Receive Date: 20140325
  Receipt Date: 20140416
  Transmission Date: 20141212
  Serious: Yes (Death)
  Sender: FDA-Public Use
  Company Number: EC-BRISTOL-MYERS SQUIBB COMPANY-20533972

PATIENT
  Age: 38 Year
  Sex: 0

DRUGS (2)
  1. CETUXIMAB [Suspect]
     Indication: SQUAMOUS CELL CARCINOMA OF HEAD AND NECK
     Dosage: LAST DOSE ON: 03JAN2008?57.1429 MG/M2,250 MG/M2, TOTAL 76.7%?35.7143 MG/M2
     Route: 042
     Dates: start: 20071030
  2. CISPLATIN [Suspect]
     Indication: SQUAMOUS CELL CARCINOMA OF HEAD AND NECK
     Dosage: TOTAL DOSE 57.5%
     Route: 042
     Dates: start: 20071107, end: 20080122

REACTIONS (1)
  - Sepsis [Fatal]
